FAERS Safety Report 4699587-3 (Version None)
Quarter: 2005Q2

REPORT INFORMATION
  Report Type: 
  Country: None (occurrence: None)
  Receive Date: 20050623
  Receipt Date: 20050614
  Transmission Date: 20051028
  Serious: Yes (Other)
  Sender: FDA-Public Use
  Company Number: 2005089273

PATIENT
  Age: 59 Year
  Sex: Female

DRUGS (1)
  1. NORVASC [Suspect]
     Indication: HYPERTENSION
     Dosage: 10 MG, ORAL
     Route: 048

REACTIONS (3)
  - DIZZINESS [None]
  - TREMOR [None]
  - URINARY INCONTINENCE [None]
